FAERS Safety Report 26012361 (Version 1)
Quarter: 2025Q4

REPORT INFORMATION
  Report Type: Report from Study
  Country: EC (occurrence: EC)
  Receive Date: 20251107
  Receipt Date: 20251107
  Transmission Date: 20260118
  Serious: Yes (Death)
  Sender: BIOVITRUM
  Company Number: DO-AstraZeneca-CH-00986479A

PATIENT
  Age: 10 Week
  Sex: Female

DRUGS (1)
  1. SYNAGIS [Suspect]
     Active Substance: PALIVIZUMAB
     Indication: Respiratory syncytial virus infection
     Dosage: 15 MILLIGRAM/KILOGRAM, Q4W
     Route: 030
     Dates: start: 20250805

REACTIONS (2)
  - Dehydration [Fatal]
  - Diarrhoea [Fatal]

NARRATIVE: CASE EVENT DATE: 20251012
